FAERS Safety Report 7019845-7 (Version None)
Quarter: 2010Q3

REPORT INFORMATION
  Report Type: 
  Country: None (occurrence: None)
  Receive Date: 20100922
  Receipt Date: 20100914
  Transmission Date: 20110219
  Serious: Yes (Hospitalization)
  Sender: FDA-Public Use
  Company Number: 698283

PATIENT
  Age: 30 Day
  Sex: Male
  Weight: 0.95 kg

DRUGS (4)
  1. METHOTREXATE [Suspect]
     Dosage: TRANSPLACENTAL
     Route: 064
  2. LEFLUNOMIDE [Suspect]
     Dosage: TRANSPLACENTAL
     Route: 064
  3. FOLIC ACID [Concomitant]
  4. CHOLESTYRAMINE [Concomitant]

REACTIONS (5)
  - APGAR SCORE LOW [None]
  - CAESAREAN SECTION [None]
  - MATERNAL DRUGS AFFECTING FOETUS [None]
  - PREMATURE BABY [None]
  - SMALL FOR DATES BABY [None]
